FAERS Safety Report 10867073 (Version 3)
Quarter: 2015Q2

REPORT INFORMATION
  Report Type: Other
  Country: FI (occurrence: FI)
  Receive Date: 20150225
  Receipt Date: 20150527
  Transmission Date: 20150821
  Serious: No
  Sender: FDA-Public Use
  Company Number: FI-ASTELLAS-2015US005147

PATIENT
  Age: 82 Year
  Sex: Female

DRUGS (13)
  1. PERINDOPRIL RATIOPHARM [Concomitant]
     Indication: CARDIAC FAILURE
     Route: 048
     Dates: start: 20000101
  2. EZETROL [Concomitant]
     Active Substance: EZETIMIBE
     Indication: BLOOD CHOLESTEROL
     Route: 048
     Dates: start: 20000101
  3. VAGIFEM [Concomitant]
     Active Substance: ESTRADIOL
     Indication: MUCOUS MEMBRANE DISORDER
     Route: 067
     Dates: start: 20000101
  4. PARACETAMOL-RATIOPHARM [Concomitant]
     Indication: PAIN
     Dosage: 500 MG, OTHER (1-2)
     Route: 048
     Dates: start: 20000101
  5. PRIMASPAN [Concomitant]
     Indication: CORONARY ARTERY DISEASE
     Route: 048
     Dates: start: 20000101
  6. NITROFUR-C [Concomitant]
     Indication: PROPHYLAXIS URINARY TRACT INFECTION
     Route: 048
     Dates: start: 20000101
  7. TEMESTA                            /00273201/ [Concomitant]
     Active Substance: LORAZEPAM
     Indication: SEDATIVE THERAPY
     Dosage: 0.25 MG, ONCE DAILY
     Route: 048
     Dates: start: 20120101
  8. OMEPRAZOL ACTAVIS [Concomitant]
     Active Substance: OMEPRAZOLE
     Indication: GASTROOESOPHAGEAL REFLUX DISEASE
     Route: 048
     Dates: start: 20000101
  9. ORLOC [Concomitant]
     Active Substance: BISOPROLOL FUMARATE
     Indication: CORONARY ARTERY DISEASE
     Route: 048
     Dates: start: 20000101
  10. CALCICHEW D3 FORTE [Concomitant]
     Active Substance: CALCIUM\CHOLECALCIFEROL
     Indication: MUSCULOSKELETAL DISORDER
     Dosage: 500 MG/10 MICROG-1000 MG/20 MICROG, ONCE DAILY
     Route: 048
     Dates: start: 20000101
  11. BETMIGA [Suspect]
     Active Substance: MIRABEGRON
     Indication: URINARY INCONTINENCE
     Dosage: 50 MG X1, UNKNOWN FREQ.
     Route: 065
  12. COMFORA [Concomitant]
     Indication: OSTEOARTHRITIS
     Dosage: 595 MG-1190 MG / DAY, ONCE DAILY
     Route: 048
     Dates: start: 20000101
  13. SIMVASTATIN ORION [Concomitant]
     Active Substance: SIMVASTATIN
     Indication: BLOOD CHOLESTEROL
     Route: 048
     Dates: start: 20000101

REACTIONS (5)
  - Urinary incontinence [Recovered/Resolved]
  - Disturbance in attention [Recovered/Resolved]
  - Agitation [Recovered/Resolved]
  - Insomnia [Recovered/Resolved]
  - Headache [Recovered/Resolved]

NARRATIVE: CASE EVENT DATE: 20140330
